FAERS Safety Report 25591939 (Version 4)
Quarter: 2025Q4

REPORT INFORMATION
  Report Type: Spontaneous
  Country: US (occurrence: US)
  Receive Date: 20250722
  Receipt Date: 20251002
  Transmission Date: 20260117
  Serious: No
  Sender: BRISTOL-MYERS SQUIBB COMPANY
  Company Number: US-BRISTOL-MYERS SQUIBB COMPANY-2025-102511

PATIENT
  Age: 69 Year
  Sex: Female

DRUGS (2)
  1. POMALYST [Suspect]
     Active Substance: POMALIDOMIDE
     Indication: Product used for unknown indication
     Dosage: DAILY AT BEDTIME FOR 7 DAYS ON, 7 DAYS OFF
  2. POMALYST [Suspect]
     Active Substance: POMALIDOMIDE

REACTIONS (5)
  - Product distribution issue [Unknown]
  - Arthropod bite [Unknown]
  - Therapy interrupted [Unknown]
  - Neutrophil count decreased [Unknown]
  - Ocular rosacea [Unknown]
